FAERS Safety Report 24244216 (Version 1)
Quarter: 2024Q3

REPORT INFORMATION
  Report Type: Report from Study
  Country: US (occurrence: US)
  Receive Date: 20240823
  Receipt Date: 20240823
  Transmission Date: 20241016
  Serious: Yes (Other)
  Sender: ROCHE
  Company Number: US-ROCHE-10000055578

PATIENT
  Sex: Female

DRUGS (1)
  1. MYCOPHENOLATE MOFETIL [Suspect]
     Active Substance: MYCOPHENOLATE MOFETIL
     Indication: Renal transplant
     Dosage: 2 CAPS 2 TIMES DAILY
     Route: 065

REACTIONS (4)
  - Blindness [Unknown]
  - Intentional product misuse [Unknown]
  - Illness [Unknown]
  - Blood pressure abnormal [Unknown]
